FAERS Safety Report 24249791 (Version 1)
Quarter: 2024Q3

REPORT INFORMATION
  Report Type: Spontaneous
  Country: US (occurrence: None)
  Receive Date: 20240823
  Receipt Date: 20240823
  Transmission Date: 20241017
  Serious: Yes (Hospitalization)
  Sender: Public
  Company Number: None

PATIENT
  Age: 24 Year
  Sex: Female
  Weight: 60 kg

DRUGS (1)
  1. FOLIC ACID [Suspect]
     Active Substance: FOLIC ACID
     Dosage: 1 TOT - TOTAL DAILY ORAL
     Route: 048

REACTIONS (1)
  - Gingival bleeding [None]

NARRATIVE: CASE EVENT DATE: 20240821
